FAERS Safety Report 10086405 (Version 1)
Quarter: 2014Q2

REPORT INFORMATION
  Report Type: Spontaneous
  Country: CA (occurrence: CA)
  Receive Date: 20140418
  Receipt Date: 20140418
  Transmission Date: 20141212
  Serious: Yes (Other)
  Sender: FDA-Public Use
  Company Number: CA-TEVA-476567USA

PATIENT
  Age: 56 Year
  Sex: Male

DRUGS (2)
  1. TREANDA [Suspect]
     Dosage: DAILY DOSE NOT REPORTED. (NUMBER OF CYCLES NOT REPORTED.)
     Route: 042
     Dates: start: 20130718, end: 20130815
  2. RITUXIMAB [Suspect]
     Dosage: DAILY DOSE NOT REPORTED. (2 INFUSIONS WERE GIVEN)
     Route: 042
     Dates: start: 20130718, end: 20130815

REACTIONS (2)
  - Disease progression [Unknown]
  - Off label use [Unknown]
